FAERS Safety Report 4672573-5 (Version None)
Quarter: 2005Q2

REPORT INFORMATION
  Report Type: 
  Country: None (occurrence: None)
  Receive Date: 20050524
  Receipt Date: 20050520
  Transmission Date: 20051028
  Serious: Yes (Other)
  Sender: FDA-Public Use
  Company Number: US-GLAXOSMITHKLINE-A0559585A

PATIENT
  Age: 45 Year
  Sex: Female

DRUGS (2)
  1. FLONASE [Suspect]
     Indication: RHINITIS
     Dosage: 1SPR PER DAY
     Route: 045
     Dates: start: 20050405
  2. ATARAX [Concomitant]

REACTIONS (4)
  - ANGINA PECTORIS [None]
  - HOT FLUSH [None]
  - HYPERAESTHESIA [None]
  - NAUSEA [None]
